FAERS Safety Report 22263962 (Version 4)
Quarter: 2023Q2

REPORT INFORMATION
  Report Type: Report from Study
  Country: CN (occurrence: CN)
  Receive Date: 20230428
  Receipt Date: 20230517
  Transmission Date: 20230721
  Serious: Yes (Hospitalization)
  Sender: FDA-Public Use
  Company Number: CN-TAKEDA-2023TUS041390

PATIENT
  Age: 49 Year
  Sex: Female
  Weight: 46 kg

DRUGS (8)
  1. VEDOLIZUMAB [Suspect]
     Active Substance: VEDOLIZUMAB
     Indication: Crohn^s disease
     Dosage: 300 MILLIGRAM
     Route: 042
     Dates: start: 20221125
  2. ESTAZOLAM [Concomitant]
     Active Substance: ESTAZOLAM
     Indication: Insomnia
     Dosage: 1 MILLIGRAM, QD
     Route: 048
     Dates: start: 20221122, end: 20221122
  3. ESTAZOLAM [Concomitant]
     Active Substance: ESTAZOLAM
     Dosage: 1 MILLIGRAM, QD
     Route: 048
     Dates: start: 20221129, end: 20221129
  4. FERRIC POLYSACCHARIDE COMPLEX [Concomitant]
     Active Substance: FERRIC POLYSACCHARIDE COMPLEX
     Indication: Anaemia
     Dosage: 150 MILLIGRAM, BID
     Route: 048
     Dates: start: 20221123, end: 20221130
  5. FERRIC POLYSACCHARIDE COMPLEX [Concomitant]
     Active Substance: FERRIC POLYSACCHARIDE COMPLEX
     Dosage: 150 MILLIGRAM, QD
     Route: 048
     Dates: start: 20221129, end: 20221129
  6. Polyethylene Glycol Electrolytes [Concomitant]
     Indication: Inflammatory bowel disease
     Dosage: 131.12 GRAM, QD
     Route: 048
     Dates: start: 20221122, end: 20221122
  7. Polyethylene Glycol Electrolytes [Concomitant]
     Dosage: 131.12 GRAM, QD
     Route: 048
     Dates: start: 20221125, end: 20221127
  8. ESOMEPRAZOLE MAGNESIUM [Concomitant]
     Active Substance: ESOMEPRAZOLE MAGNESIUM
     Indication: Inflammatory bowel disease
     Dosage: 20 MILLIGRAM, QD
     Route: 048
     Dates: start: 20221129, end: 20221129

REACTIONS (2)
  - H1N1 influenza [Recovered/Resolved]
  - Pharyngitis [Recovered/Resolved]

NARRATIVE: CASE EVENT DATE: 20230119
